FAERS Safety Report 16183670 (Version 2)
Quarter: 2019Q2

REPORT INFORMATION
  Report Type: Spontaneous
  Country: US (occurrence: US)
  Receive Date: 20190411
  Receipt Date: 20190429
  Transmission Date: 20190711
  Serious: Yes (Other)
  Sender: FDA-Public Use
  Company Number: US-ENDO PHARMACEUTICALS INC-2019-103737

PATIENT
  Sex: Male
  Weight: 97.51 kg

DRUGS (6)
  1. TESTOSTERONE. [Suspect]
     Active Substance: TESTOSTERONE
     Dosage: 100 MG (2 TUBES), DAILY
     Route: 061
     Dates: start: 201804, end: 201810
  2. TESTOSTERONE. [Suspect]
     Active Substance: TESTOSTERONE
     Dosage: 50 MG (1 TUBE), DAILY
     Route: 061
     Dates: start: 201810, end: 201901
  3. TESTOSTERONE. [Suspect]
     Active Substance: TESTOSTERONE
     Dosage: 50 MG (1 TUBE), DAILY
     Route: 061
     Dates: start: 201903
  4. TESTOSTERONE. [Suspect]
     Active Substance: TESTOSTERONE
     Dosage: 50 MG (1 TUBE), EVERY OTHER DAY
     Route: 061
     Dates: start: 201901, end: 201903
  5. TESTOSTERONE. [Suspect]
     Active Substance: TESTOSTERONE
     Indication: BLOOD TESTOSTERONE DECREASED
     Dosage: 50 MG (1 TUBE), DAILY
     Route: 061
     Dates: start: 201803, end: 201804
  6. TESTOSTERONE. [Suspect]
     Active Substance: TESTOSTERONE
     Indication: BLOOD TESTOSTERONE DECREASED
     Dosage: 50 MG (1 TUBE), DAILY
     Route: 061
     Dates: start: 201801, end: 201803

REACTIONS (3)
  - Off label use [Not Recovered/Not Resolved]
  - Colon cancer [Recovered/Resolved]
  - Blood testosterone decreased [Not Recovered/Not Resolved]

NARRATIVE: CASE EVENT DATE: 2018
